FAERS Safety Report 5507219-7 (Version None)
Quarter: 2007Q4

REPORT INFORMATION
  Report Type: 
  Country: None (occurrence: None)
  Receive Date: 20071015
  Receipt Date: 20071002
  Transmission Date: 20080405
  Serious: Yes (Other)
  Sender: FDA-Public Use
  Company Number: THYM-11476

PATIENT
  Age: 30 Year
  Sex: Male
  Weight: 86 kg

DRUGS (4)
  1. THYMOGLOBULIN [Suspect]
     Indication: KIDNEY TRANSPLANT REJECTION
     Dosage: 175 MG QD IV
     Route: 042
     Dates: start: 20070518, end: 20070520
  2. TACROLIMUS [Concomitant]
  3. PREDNISONE TAB [Concomitant]
  4. MYFORTIC [Concomitant]

REACTIONS (3)
  - ARTHRALGIA [None]
  - PAIN IN JAW [None]
  - SERUM SICKNESS [None]
